FAERS Safety Report 5699757-1 (Version None)
Quarter: 2008Q2

REPORT INFORMATION
  Report Type: 
  Country: None (occurrence: None)
  Receive Date: 20080408
  Receipt Date: 20080408
  Transmission Date: 20081010
  Serious: Yes (Life-Threatening, Hospitalization)
  Sender: FDA-Public Use
  Company Number: None

PATIENT
  Age: 54 Year
  Sex: Female
  Weight: 45.3597 kg

DRUGS (1)
  1. VYTORIN [Suspect]
     Indication: BLOOD CHOLESTEROL INCREASED
     Dosage: 10/40  1 TABLET A DAY  PO
     Route: 048
     Dates: start: 20071111, end: 20080106

REACTIONS (8)
  - ABDOMINAL DISTENSION [None]
  - DRUG HYPERSENSITIVITY [None]
  - DYSSTASIA [None]
  - HEPATIC FAILURE [None]
  - MUSCULAR WEAKNESS [None]
  - MYALGIA [None]
  - PAIN [None]
  - RENAL FAILURE [None]
